FAERS Safety Report 8024851-X (Version None)
Quarter: 2012Q1

REPORT INFORMATION
  Report Type: 
  Country: None (occurrence: None)
  Receive Date: 20120105
  Receipt Date: 20111228
  Transmission Date: 20120608
  Serious: Yes (Other)
  Sender: FDA-Public Use
  Company Number: DE-AMGEN-DEUSP2011057832

PATIENT
  Age: 76 Year
  Sex: Male

DRUGS (1)
  1. PROLIA [Suspect]
     Indication: PROSTATE CANCER
     Dosage: UNK UNK, Q6MO
     Route: 058
     Dates: start: 20101104

REACTIONS (1)
  - METASTASES TO BONE [None]
